FAERS Safety Report 6783520-4 (Version None)
Quarter: 2010Q2

REPORT INFORMATION
  Report Type: 
  Country: None (occurrence: None)
  Receive Date: 20100622
  Receipt Date: 20100615
  Transmission Date: 20101027
  Serious: Yes (Hospitalization)
  Sender: FDA-Public Use
  Company Number: FR-SANOFI-AVENTIS-2010SA034557

PATIENT
  Age: 82 Year
  Sex: Male

DRUGS (13)
  1. SOLUPRED [Suspect]
     Indication: BRONCHITIS
     Route: 048
     Dates: start: 20100119, end: 20100121
  2. LASIX [Suspect]
     Route: 048
     Dates: start: 20100119, end: 20100121
  3. ROCEPHIN [Suspect]
     Indication: BRONCHITIS
     Route: 030
     Dates: start: 20100119, end: 20100121
  4. DOMPERIDONE [Concomitant]
  5. ALLOPURINOL [Concomitant]
  6. ESOMEPRAZOLE [Concomitant]
  7. XATRAL [Concomitant]
  8. LORAZEPAM [Concomitant]
  9. MONICOR [Concomitant]
  10. BRICANYL [Concomitant]
  11. KARDEGIC [Concomitant]
  12. FORADIL [Concomitant]
  13. MIFLASONE [Concomitant]

REACTIONS (1)
  - STEVENS-JOHNSON SYNDROME [None]
